FAERS Safety Report 7799222-1 (Version None)
Quarter: 2011Q4

REPORT INFORMATION
  Report Type: 
  Country: None (occurrence: None)
  Receive Date: 20111006
  Receipt Date: 20110928
  Transmission Date: 20120403
  Serious: Yes (Other)
  Sender: FDA-Public Use
  Company Number: JP-BAYER-2011-092720

PATIENT
  Age: 42 Year
  Sex: Male

DRUGS (2)
  1. ANTIHEMOPHILIC FACTOR (HUMAN) [Suspect]
     Indication: FACTOR VIII DEFICIENCY
     Dosage: DAILY DOSE 2000 U
     Route: 042
  2. NAFAMOSTAT [Concomitant]
     Indication: ANTICOAGULANT THERAPY
     Dosage: UNK
     Route: 042

REACTIONS (1)
  - RENAL IMPAIRMENT [None]
